FAERS Safety Report 16248767 (Version 1)
Quarter: 2019Q2

REPORT INFORMATION
  Report Type: Spontaneous
  Country: US (occurrence: US)
  Receive Date: 20190429
  Receipt Date: 20190429
  Transmission Date: 20190711
  Serious: No
  Sender: FDA-Public Use
  Company Number: US-ELI_LILLY_AND_COMPANY-US201904013922

PATIENT
  Sex: Male

DRUGS (4)
  1. METFORMIN [Concomitant]
     Active Substance: METFORMIN HYDROCHLORIDE
     Indication: PRODUCT USED FOR UNKNOWN INDICATION
  2. BASAGLAR [Suspect]
     Active Substance: INSULIN GLARGINE
     Indication: TYPE 2 DIABETES MELLITUS
     Dosage: 19 INTERNATIONAL UNIT, BID
     Route: 058
     Dates: start: 201903
  3. BASAGLAR [Suspect]
     Active Substance: INSULIN GLARGINE
     Dosage: 21 INTERNATIONAL UNIT, BID
     Route: 058
  4. BASAGLAR [Suspect]
     Active Substance: INSULIN GLARGINE
     Dosage: UNK UNK, BID (MORE THAN 21 UNITS)
     Route: 058

REACTIONS (4)
  - Inappropriate schedule of product administration [Unknown]
  - Accidental underdose [Unknown]
  - Malaise [Not Recovered/Not Resolved]
  - Blood glucose increased [Not Recovered/Not Resolved]
